FAERS Safety Report 9785722 (Version 5)
Quarter: 2014Q2

REPORT INFORMATION
  Report Type: Report from Study
  Country: US (occurrence: US)
  Receive Date: 20131227
  Receipt Date: 20140604
  Transmission Date: 20141212
  Serious: Yes (Other)
  Sender: FDA-Public Use
  Company Number: US-SA-2013SA133311

PATIENT
  Age: 56 Year
  Sex: Male

DRUGS (2)
  1. AUBAGIO [Suspect]
     Indication: MULTIPLE SCLEROSIS
     Route: 048
     Dates: start: 20131212, end: 20140210
  2. AUBAGIO [Suspect]
     Indication: MULTIPLE SCLEROSIS
     Route: 048
     Dates: start: 20140211, end: 20140227

REACTIONS (14)
  - Cerebrospinal fluid retention [Not Recovered/Not Resolved]
  - Sinus operation [Unknown]
  - Upper respiratory tract congestion [Not Recovered/Not Resolved]
  - Dry mouth [Unknown]
  - Paraesthesia oral [Unknown]
  - Feeling hot [Unknown]
  - Swelling [Unknown]
  - Increased appetite [Unknown]
  - Paraesthesia [Unknown]
  - Gastrointestinal disorder [Not Recovered/Not Resolved]
  - Diarrhoea [Not Recovered/Not Resolved]
  - Abdominal pain [Not Recovered/Not Resolved]
  - Dyspepsia [Not Recovered/Not Resolved]
  - Fatigue [Not Recovered/Not Resolved]
